FAERS Safety Report 4646415-8 (Version None)
Quarter: 2005Q2

REPORT INFORMATION
  Report Type: 
  Country: None (occurrence: None)
  Receive Date: 20050427
  Receipt Date: 20041119
  Transmission Date: 20051028
  Serious: Yes (Hospitalization)
  Sender: FDA-Public Use
  Company Number: US-GLAXOSMITHKLINE-A0534638A

PATIENT
  Age: 57 Year
  Sex: Female

DRUGS (2)
  1. SEREVENT [Suspect]
     Route: 055
     Dates: start: 19981110, end: 19981110
  2. PREDNISONE [Suspect]

REACTIONS (2)
  - HEART RATE INCREASED [None]
  - HYPERTENSION [None]
